FAERS Safety Report 17779540 (Version 1)
Quarter: 2020Q2

REPORT INFORMATION
  Report Type: Report from Study
  Country: US (occurrence: US)
  Receive Date: 20200514
  Receipt Date: 20200514
  Transmission Date: 20200714
  Serious: Yes (Hospitalization, Other)
  Sender: FDA-Public Use
  Company Number: US-ROCHE-2598581

PATIENT
  Sex: Male
  Weight: 99.88 kg

DRUGS (9)
  1. OCREVUS [Suspect]
     Active Substance: OCRELIZUMAB
     Indication: SECONDARY PROGRESSIVE MULTIPLE SCLEROSIS
     Dosage: INFUSE 300 MG ON DAY 1 AND DAY 15?DATE OF TREATMENT: 08/NOV/2018, 01/NOV/2019, 08/MAY/2019, 06/MAY/2
     Route: 042
     Dates: start: 2017
  2. ZYRTEC [Concomitant]
     Active Substance: CETIRIZINE HYDROCHLORIDE
     Indication: SEASONAL ALLERGY
     Route: 048
  3. AMPHETAMINE [Concomitant]
     Active Substance: AMPHETAMINE
     Indication: FATIGUE
     Route: 048
     Dates: start: 2017
  4. FLOMAX [Concomitant]
     Active Substance: TAMSULOSIN HYDROCHLORIDE
     Indication: BENIGN PROSTATIC HYPERPLASIA
     Dosage: 2 AT BEDTIME ;ONGOING: YES
     Route: 048
  5. DIAZEPAM. [Concomitant]
     Active Substance: DIAZEPAM
     Indication: MUSCLE SPASMS
     Dosage: AS NEEDED FOR MUSCLE SPASMS ;ONGOING: YES
     Route: 065
  6. ALPHA LIPOIC ACID [Concomitant]
     Active Substance: .ALPHA.-LIPOIC ACID
     Indication: MULTIPLE SCLEROSIS
     Dosage: 1200 MG ;ONGOING: YES
     Route: 048
  7. MELOXICAM. [Concomitant]
     Active Substance: MELOXICAM
     Indication: ARTHRITIS
     Route: 048
  8. ASPIRIN 81 [Concomitant]
     Active Substance: ASPIRIN
     Route: 048
  9. CRANBERRY [VACCINIUM SPP.] [Concomitant]
     Route: 048

REACTIONS (5)
  - Cystitis [Recovered/Resolved]
  - Meningitis bacterial [Recovered/Resolved]
  - Sciatica [Recovered/Resolved]
  - Multiple sclerosis relapse [Not Recovered/Not Resolved]
  - Cyst [Not Recovered/Not Resolved]

NARRATIVE: CASE EVENT DATE: 2018
